FAERS Safety Report 8432386-5 (Version None)
Quarter: 2012Q2

REPORT INFORMATION
  Report Type: 
  Country: None (occurrence: None)
  Receive Date: 20120613
  Receipt Date: 20120604
  Transmission Date: 20120825
  Serious: Yes (Life-Threatening, Hospitalization)
  Sender: FDA-Public Use
  Company Number: US-NOVOPROD-353114

PATIENT
  Age: 63 Year
  Sex: Female
  Weight: 45.351 kg

DRUGS (3)
  1. HUMALOG [Concomitant]
     Dosage: UNKNOWN
     Route: 065
  2. LANTUS [Concomitant]
     Indication: TYPE 2 DIABETES MELLITUS
     Dosage: UNKNOWN
     Route: 065
  3. GLUCAGEN [Suspect]
     Indication: BLOOD GLUCOSE DECREASED
     Dosage: UNK UNK, SINGLE
     Route: 058
     Dates: start: 20120416, end: 20120416

REACTIONS (3)
  - RESPIRATORY ARREST [None]
  - HYPOGLYCAEMIC COMA [None]
  - DRUG INEFFECTIVE [None]
